FAERS Safety Report 15594429 (Version 2)
Quarter: 2018Q4

REPORT INFORMATION
  Report Type: Spontaneous
  Country: TR (occurrence: TR)
  Receive Date: 20181106
  Receipt Date: 20181213
  Transmission Date: 20190205
  Serious: Yes (Hospitalization, Other)
  Sender: FDA-Public Use
  Company Number: TR-ABBVIE-18P-161-2547061-00

PATIENT
  Age: 58 Year
  Sex: Female

DRUGS (3)
  1. LEVODOPA/CARBIDOPA [Suspect]
     Active Substance: CARBIDOPA\LEVODOPA
     Dosage: PER 24 HOURS
     Route: 065
  2. LEVODOPA/CARBIDOPA [Suspect]
     Active Substance: CARBIDOPA\LEVODOPA
     Dosage: DURING THE DAY
     Route: 065
  3. LEVODOPA/CARBIDOPA [Suspect]
     Active Substance: CARBIDOPA\LEVODOPA
     Indication: PARKINSON^S DISEASE
     Route: 065

REACTIONS (3)
  - Cerebral artery embolism [Recovered/Resolved]
  - Pulmonary embolism [Recovered/Resolved]
  - Blood homocysteine increased [Recovered/Resolved]
